FAERS Safety Report 26069226 (Version 1)
Quarter: 2025Q4

REPORT INFORMATION
  Report Type: Spontaneous
  Country: US (occurrence: US)
  Receive Date: 20251120
  Receipt Date: 20251120
  Transmission Date: 20260118
  Serious: No
  Sender: AMNEAL
  Company Number: US-AMNEAL PHARMACEUTICALS-2025-AMRX-03778

PATIENT

DRUGS (4)
  1. CREXONT [Suspect]
     Active Substance: CARBIDOPA\LEVODOPA
     Indication: Parkinson^s disease
     Dosage: 2 CAPSULES, 3X/DAY, 70/280MG, 2 HOURS BEFORE OR 2 HOURS AFTER MEALS
     Route: 048
     Dates: start: 2025
  2. CREXONT [Suspect]
     Active Substance: CARBIDOPA\LEVODOPA
     Dosage: UNK (INCREASED DOSE)
     Route: 048
  3. CREXONT [Suspect]
     Active Substance: CARBIDOPA\LEVODOPA
     Dosage: 70/280 MG
     Route: 048
  4. CARBIDOPA\LEVODOPA [Suspect]
     Active Substance: CARBIDOPA\LEVODOPA
     Indication: Parkinson^s disease
     Dosage: 25 MG
     Route: 048
     Dates: start: 20250928

REACTIONS (13)
  - Speech disorder [Unknown]
  - Hyperhidrosis [Unknown]
  - Movement disorder [Unknown]
  - Bruxism [Unknown]
  - Muscle tightness [Unknown]
  - Hypoaesthesia oral [Unknown]
  - Taste disorder [Unknown]
  - Dry mouth [Unknown]
  - Feeding disorder [Unknown]
  - Illness [Unknown]
  - Anosmia [Unknown]
  - Anxiety [Unknown]
  - Product use issue [Unknown]

NARRATIVE: CASE EVENT DATE: 20250928
